FAERS Safety Report 6088262-9 (Version None)
Quarter: 2009Q1

REPORT INFORMATION
  Report Type: 
  Country: None (occurrence: None)
  Receive Date: 20090219
  Receipt Date: 20090212
  Transmission Date: 20090719
  Serious: Yes (Hospitalization)
  Sender: FDA-Public Use
  Company Number: DSA_32651_2008

PATIENT
  Age: 61 Year
  Sex: Female

DRUGS (2)
  1. ENALAPRIL MALEATE [Suspect]
     Indication: GENERAL SYMPTOM
     Dosage: (DF ORAL)
     Route: 048
  2. ENALAPRIL MALEATE [Suspect]
     Indication: GENERAL SYMPTOM
     Dosage: (20 MG TID ORAL)
     Route: 048

REACTIONS (4)
  - HYPERSENSITIVITY [None]
  - HYPOACUSIS [None]
  - LOCALISED INFECTION [None]
  - LUNG INFECTION [None]
